FAERS Safety Report 18278233 (Version 3)
Quarter: 2021Q2

REPORT INFORMATION
  Report Type: Spontaneous
  Country: JP (occurrence: JP)
  Receive Date: 20200917
  Receipt Date: 20210503
  Transmission Date: 20210717
  Serious: Yes (Death)
  Sender: FDA-Public Use
  Company Number: JP-PFIZER INC-2020356403

PATIENT
  Age: 5 Decade
  Sex: Male
  Weight: 56 kg

DRUGS (1)
  1. SILDENAFIL CITRATE. [Suspect]
     Active Substance: SILDENAFIL CITRATE
     Dosage: UNK

REACTIONS (3)
  - Sudden cardiac death [Fatal]
  - Arrhythmia [Fatal]
  - Prescription drug used without a prescription [Fatal]
